FAERS Safety Report 5704901-3 (Version None)
Quarter: 2008Q2

REPORT INFORMATION
  Report Type: 
  Country: None (occurrence: None)
  Receive Date: 20080414
  Receipt Date: 20080318
  Transmission Date: 20081010
  Serious: No
  Sender: FDA-Public Use
  Company Number: US-BOEHRINGER INGELHEIM GMBH, GERMANY-2008-BP-02127BP

PATIENT
  Sex: Female

DRUGS (4)
  1. COMBIVENT [Suspect]
     Indication: EMPHYSEMA
     Route: 055
     Dates: start: 19960101
  2. ADVAIR HFA [Concomitant]
     Indication: EMPHYSEMA
  3. SYNTHROID [Concomitant]
     Indication: HYPOTHYROIDISM
  4. EYE DROPS [Concomitant]
     Indication: GLAUCOMA
     Route: 031

REACTIONS (1)
  - DRUG INEFFECTIVE [None]
